FAERS Safety Report 14235429 (Version 3)
Quarter: 2017Q4

REPORT INFORMATION
  Report Type: Spontaneous
  Country: BR (occurrence: BR)
  Receive Date: 20171129
  Receipt Date: 20171211
  Transmission Date: 20180321
  Serious: Yes (Life-Threatening, Hospitalization, Other)
  Sender: FDA-Public Use
  Company Number: BR-PFIZER INC-2017506766

PATIENT
  Age: 21 Year
  Sex: Female
  Weight: 120 kg

DRUGS (4)
  1. NORDETTE [Suspect]
     Active Substance: ETHINYL ESTRADIOL\LEVONORGESTREL
     Indication: MENSTRUAL DISORDER
     Dosage: 1 DF DAILY (1 TABLET EVERY DAY)
     Dates: end: 201511
  2. NORDETTE [Suspect]
     Active Substance: ETHINYL ESTRADIOL\LEVONORGESTREL
     Indication: CONTRACEPTION
     Dosage: 1 DF DAILY (1 TABLET EVERY DAY)
     Dates: start: 2016, end: 20171201
  3. CICLO 21 [Suspect]
     Active Substance: ETHINYL ESTRADIOL\LEVONORGESTREL
     Indication: MENSTRUAL DISORDER
     Dosage: UNK CONTINUOUS USE (AS REPORTED)
     Dates: start: 201511, end: 201601
  4. FOLIC ACID. [Concomitant]
     Active Substance: FOLIC ACID
     Dosage: UNK
     Dates: start: 20171201

REACTIONS (5)
  - Unintended pregnancy [Recovered/Resolved]
  - Abortion incomplete [Recovered/Resolved]
  - Uterine necrosis [Recovered/Resolved]
  - Vaginal odour [Recovered/Resolved]
  - Drug administration error [Recovered/Resolved]

NARRATIVE: CASE EVENT DATE: 201601
